FAERS Safety Report 4449684-2 (Version None)
Quarter: 2004Q3

REPORT INFORMATION
  Report Type: 
  Country: None (occurrence: None)
  Receive Date: 20040913
  Receipt Date: 20040831
  Transmission Date: 20050211
  Serious: Yes (Other)
  Sender: FDA-Public Use
  Company Number: 2004-00457FE

PATIENT
  Age: 48 Year
  Sex: Male

DRUGS (1)
  1. PENTASA [Suspect]
     Indication: COLITIS ULCERATIVE
     Dosage: 2000 MG ORALLY
     Route: 048
     Dates: start: 20040505

REACTIONS (10)
  - ATRIAL FIBRILLATION [None]
  - LEFT VENTRICULAR FAILURE [None]
  - LUNG INFILTRATION [None]
  - MYOCARDITIS [None]
  - PERICARDITIS [None]
  - PLEURAL EFFUSION [None]
  - SEPSIS [None]
  - SINUS TACHYCARDIA [None]
  - TACHYARRHYTHMIA [None]
  - TROPONIN I INCREASED [None]
